FAERS Safety Report 8725505 (Version 2)
Quarter: 2013Q2

REPORT INFORMATION
  Report Type: Spontaneous
  Country: US (occurrence: None)
  Receive Date: 20120423
  Receipt Date: 20121227
  Transmission Date: 20140414
  Serious: Yes (Other)
  Sender: FDA-Public Use
  Company Number: PHHY2010US18708

PATIENT
  Age: 76 Year
  Sex: Female

DRUGS (16)
  1. EXJADE [Suspect]
     Indication: IRON OVERLOAD
     Dosage: 1500 MG, QD, ORAL;
     Route: 048
     Dates: start: 200710, end: 200811
  2. EXJADE [Suspect]
     Indication: MYELODYSPLASTIC SYNDROME
     Dosage: 1500 MG, QD, ORAL;
     Route: 048
     Dates: start: 200710, end: 200811
  3. ATENOLOL (ATENOLOL) [Concomitant]
  4. LASIX (FUROSMIDE) [Concomitant]
  5. KLOR-CON [Concomitant]
  6. NEXIUM [Concomitant]
  7. NEURONTIN [Concomitant]
  8. CALCIUM CARBONATE [Concomitant]
  9. MULTIVITAMINS (ASCORBIC ACID, ERGOCALCIFEROL, FOLIC ACID, NICOTINAMIDE, PANTHENOL, RETINOL, RIBOFLAVIN, THIAMIDE HYDROCHLORIDE) [Concomitant]
  10. VICODIN [Concomitant]
  11. ZYVOX [Concomitant]
  12. LANOXIN [Concomitant]
  13. VITAMIN D (ERGOCALCIFEROL) [Concomitant]
  14. CARAFAATE (SUCRALFATE) [Concomitant]
  15. FOSAMAX [Concomitant]
  16. VIDAZA [Concomitant]

REACTIONS (3)
  - ABDOMINAL PAIN [None]
  - NAUSEA [None]
  - Drug intolerance [None]
